FAERS Safety Report 21357581 (Version 3)
Quarter: 2022Q4

REPORT INFORMATION
  Report Type: Report from Study
  Country: GB (occurrence: GB)
  Receive Date: 20220921
  Receipt Date: 20221004
  Transmission Date: 20230112
  Serious: Yes (Other)
  Sender: FDA-Public Use
  Company Number: GB-BRISTOL-MYERS SQUIBB COMPANY-2022-108721

PATIENT
  Age: 80 Year
  Sex: Female

DRUGS (2)
  1. ORENCIA [Suspect]
     Active Substance: ABATACEPT
     Indication: Rheumatoid arthritis
     Dosage: ORENCIA CLICKJECT 125MG/1ML SOLUTION FOR INJECTION PRE-FILLED PENS
     Route: 058
     Dates: start: 20220902
  2. ORENCIA [Suspect]
     Active Substance: ABATACEPT
     Dosage: EW
     Route: 058

REACTIONS (10)
  - Thrombosis [Unknown]
  - Pulmonary thrombosis [Unknown]
  - Fatigue [Unknown]
  - Dyspnoea [Unknown]
  - Dizziness [Unknown]
  - Malaise [Unknown]
  - Feeling abnormal [Unknown]
  - Muscular weakness [Unknown]
  - Cough [Unknown]
  - Fibrosis [Unknown]
